FAERS Safety Report 5373267-3 (Version None)
Quarter: 2007Q2

REPORT INFORMATION
  Report Type: 
  Country: None (occurrence: None)
  Receive Date: 20070628
  Receipt Date: 20070620
  Transmission Date: 20071010
  Serious: Yes (Hospitalization)
  Sender: FDA-Public Use
  Company Number: US-JNJFOC-20070604807

PATIENT
  Sex: Female

DRUGS (2)
  1. TYLENOL [Suspect]
     Indication: INFLAMMATION
  2. TYLENOL [Suspect]
     Indication: PAIN
     Dosage: AS DIRECTED

REACTIONS (4)
  - CARDIAC FAILURE CONGESTIVE [None]
  - HEPATIC FAILURE [None]
  - PNEUMONIA [None]
  - RENAL FAILURE [None]
